FAERS Safety Report 9617727 (Version 1)
Quarter: 2013Q4

REPORT INFORMATION
  Report Type: Spontaneous
  Country: None (occurrence: None)
  Receive Date: 20131009
  Receipt Date: 20131009
  Transmission Date: 20140711
  Serious: Yes (Death)
  Sender: FDA-Public Use
  Company Number: 2013P1019961

PATIENT
  Sex: Female

DRUGS (16)
  1. DIGOXIN [Suspect]
  2. WARFARIN [Suspect]
     Dates: start: 20051114
  3. FUROSEMIDE [Suspect]
     Dates: start: 20091021
  4. TAMOXIFEN [Suspect]
     Dates: start: 20051113, end: 20090921
  5. AUGMENTIN (AMOXICLLIN TRIHYDRATE + POTASSIUM CLAVULANATE) [Suspect]
     Dates: start: 20091105, end: 20091112
  6. FERROUS GLUCONATE [Concomitant]
  7. THYROXINE SODIUM (LEVOTHROXINE SODIUM) [Concomitant]
  8. TIOTROPIUM (TIOTROPIUM BROMIDE) [Concomitant]
  9. ATENOLOL [Concomitant]
  10. CANDESARTAN CILEXETIL (CANDESARTAN) [Concomitant]
  11. BUCCASTEM (PROCHLORPERAZINE MALEATE) [Concomitant]
  12. BUSCOPAN(HYOSCINE BUTYLBROMIDE) [Concomitant]
  13. FERROUS SULFATE [Concomitant]
  14. AMOXICILLIN TIHYDRATE (AMOXICILLIN) [Concomitant]
  15. CO-CODAMOL(CODEINE PHOSPHATE + PRACETAMOL) [Concomitant]
  16. LACTULOSE [Concomitant]

REACTIONS (12)
  - Thrombocytopenia [None]
  - Confusional state [None]
  - Blister [None]
  - Haemorrhage [None]
  - Malaise [None]
  - Dyspnoea [None]
  - Asthenia [None]
  - Aortic rupture [None]
  - Anaemia [None]
  - Faeces discoloured [None]
  - Drug interaction [None]
  - Aortic aneurysm [None]
